FAERS Safety Report 5029826-0 (Version None)
Quarter: 2006Q2

REPORT INFORMATION
  Report Type: 
  Country: None (occurrence: None)
  Receive Date: 20060620
  Receipt Date: 20060609
  Transmission Date: 20061013
  Serious: Yes (Hospitalization, Other)
  Sender: FDA-Public Use
  Company Number: US-ABBOTT-06P-163-0335572-00

PATIENT
  Age: 35 Year
  Sex: Male

DRUGS (15)
  1. RITONAVIR [Suspect]
     Indication: HIV INFECTION
  2. TIPRANAVIR [Suspect]
     Indication: HIV INFECTION
  3. TENOFOVIR [Suspect]
     Indication: HIV INFECTION
  4. EMTRICITABINE [Suspect]
     Indication: HIV INFECTION
  5. ENFUVIRTIDE [Suspect]
     Indication: HIV INFECTION
  6. TRAZODONE HCL [Concomitant]
     Indication: DRUG USE FOR UNKNOWN INDICATION
  7. CITALOPRAM HYDROBROMIDE [Concomitant]
     Indication: DRUG USE FOR UNKNOWN INDICATION
  8. GANCICLOVIR [Concomitant]
     Indication: GANGRENE
     Route: 042
  9. BROAD-SPECTRUM ANTIBIOTICS [Concomitant]
     Indication: GANGRENE
  10. FLUCONAZOLE [Concomitant]
     Indication: DRUG USE FOR UNKNOWN INDICATION
  11. GABAPENTIN [Concomitant]
     Indication: DRUG USE FOR UNKNOWN INDICATION
  12. CLONAZEPAM [Concomitant]
     Indication: DRUG USE FOR UNKNOWN INDICATION
  13. FOLATE SODIUM [Concomitant]
     Indication: DRUG USE FOR UNKNOWN INDICATION
  14. FLUDROCORTISONE [Concomitant]
     Indication: DRUG USE FOR UNKNOWN INDICATION
  15. DAPSONE [Concomitant]
     Indication: DRUG USE FOR UNKNOWN INDICATION

REACTIONS (7)
  - BLOOD HIV RNA INCREASED [None]
  - BLOOD PRESSURE DECREASED [None]
  - CD4 LYMPHOCYTES DECREASED [None]
  - DEEP VEIN THROMBOSIS [None]
  - PULMONARY EMBOLISM [None]
  - SYNCOPE [None]
  - TACHYCARDIA [None]
